FAERS Safety Report 8585593-5 (Version None)
Quarter: 2012Q3

REPORT INFORMATION
  Report Type: 
  Country: None (occurrence: None)
  Receive Date: 20120810
  Receipt Date: 20120731
  Transmission Date: 20120928
  Serious: Yes (Hospitalization)
  Sender: FDA-Public Use
  Company Number: US-BAYER-2012-078647

PATIENT
  Age: 43 Year
  Sex: Female
  Weight: 82.65 kg

DRUGS (10)
  1. ZOLPIDEM TARTRATE [Concomitant]
     Dosage: 10 MG, HS
     Dates: start: 20081205, end: 20120619
  2. CLONIDINE [Concomitant]
     Indication: ANXIETY
     Dosage: 0.1 MG, PRN
     Dates: start: 20091128, end: 20101213
  3. LIPITOR [Concomitant]
     Dosage: 10 MG, HS
     Dates: start: 20080902, end: 20111130
  4. METFORMIN HYDROCHLORIDE [Concomitant]
     Dosage: 1000 MG, DAILY
     Dates: start: 20080902, end: 20110927
  5. DROSPIRENONE AND ETHINYL ESTRADIOL [Suspect]
  6. METOCLOPRAMIDE [Concomitant]
     Dosage: 10 MG/AC, HS
     Dates: start: 20081218, end: 20120607
  7. GLIMEPIRIDE [Concomitant]
     Dosage: 4 MG, DAILY
     Dates: start: 20091013, end: 20120709
  8. LANTUS [Concomitant]
     Dosage: 10 U, HS
     Dates: start: 20090120, end: 20120626
  9. ALPRAZOLAM [Concomitant]
     Dosage: 0.5 MG, UNK
     Dates: start: 20100813, end: 20110926
  10. LISINOPRIL [Concomitant]
     Dosage: 10 MG, DAILY
     Dates: start: 20081024, end: 20120709

REACTIONS (2)
  - DEEP VEIN THROMBOSIS [None]
  - THROMBOPHLEBITIS SUPERFICIAL [None]
